FAERS Safety Report 5743241-3 (Version None)
Quarter: 2008Q2

REPORT INFORMATION
  Report Type: 
  Country: None (occurrence: None)
  Receive Date: 20080519
  Receipt Date: 20080514
  Transmission Date: 20081010
  Serious: Yes (Other)
  Sender: FDA-Public Use
  Company Number: CA-ALLERGAN-0805936US

PATIENT
  Sex: Female

DRUGS (1)
  1. BOTOX COSMETIC [Suspect]
     Indication: TORTICOLLIS
     Dosage: 130 UNITS, UNK
     Route: 030
     Dates: start: 20080507, end: 20080507

REACTIONS (4)
  - ANAPHYLACTIC REACTION [None]
  - DYSPHAGIA [None]
  - ERYTHEMA [None]
  - PERIORBITAL OEDEMA [None]
